FAERS Safety Report 10076063 (Version 1)
Quarter: 2014Q2

REPORT INFORMATION
  Report Type: Spontaneous
  Country: US (occurrence: None)
  Receive Date: 20140410
  Receipt Date: 20140410
  Transmission Date: 20141212
  Serious: Yes (Other)
  Sender: FDA-Public Use
  Company Number: AUR-APL-2014-04141

PATIENT
  Age: 53 Year
  Sex: Female

DRUGS (1)
  1. DULOXETINE (DULOXETINE) (DULOXETINE) [Suspect]
     Indication: SURGERY
     Route: 048

REACTIONS (5)
  - Psychiatric symptom [None]
  - Suicidal ideation [None]
  - Emotional disorder [None]
  - Arthralgia [None]
  - Arthralgia [None]
